FAERS Safety Report 11982037 (Version 1)
Quarter: 2016Q1

REPORT INFORMATION
  Report Type: Report from Study
  Country: US (occurrence: US)
  Receive Date: 20160201
  Receipt Date: 20160201
  Transmission Date: 20160526
  Serious: Yes (Hospitalization, Other)
  Sender: FDA-Public Use
  Company Number: US-ROCHE-1395746

PATIENT
  Sex: Male

DRUGS (18)
  1. ALLOPURINOL. [Concomitant]
     Active Substance: ALLOPURINOL
     Route: 048
  2. CARVEDILOL. [Concomitant]
     Active Substance: CARVEDILOL
     Route: 065
  3. VINCRISTINE [Concomitant]
     Active Substance: VINCRISTINE
  4. NEULASTA [Concomitant]
     Active Substance: PEGFILGRASTIM
  5. FUROSEMIDE. [Concomitant]
     Active Substance: FUROSEMIDE
     Route: 048
  6. FERROUS SULFATE [Concomitant]
     Active Substance: FERROUS SULFATE\FERROUS SULFATE, DRIED
     Route: 065
  7. PANTOPRAZOLE [Concomitant]
     Active Substance: PANTOPRAZOLE SODIUM
     Route: 048
  8. BENDAMUSTINE [Concomitant]
     Active Substance: BENDAMUSTINE
  9. BISACODYL. [Concomitant]
     Active Substance: BISACODYL
     Route: 054
  10. DOXORUBICIN [Concomitant]
     Active Substance: DOXORUBICIN
  11. POTASSIUM CHLORIDE. [Concomitant]
     Active Substance: POTASSIUM CHLORIDE
     Route: 048
  12. PREDNISONE. [Concomitant]
     Active Substance: PREDNISONE
     Dosage: 2 TABLETS IN MORNING FOLLOWING 5 DAYS AFTER CHEMO TREATMENT
     Route: 065
  13. XENADERM [Concomitant]
     Active Substance: BALSAM PERU OIL\CASTOR OIL\TRYPSIN
  14. MAGNESIUM HYDROXIDE. [Concomitant]
     Active Substance: MAGNESIUM HYDROXIDE
     Route: 048
  15. SODIUM BIPHOSPHATE [Concomitant]
     Dosage: 1 ENEMA
     Route: 054
  16. ASPIRIN. [Concomitant]
     Active Substance: ASPIRIN
     Route: 048
  17. CYCLOPHOSPHAMIDE. [Concomitant]
     Active Substance: CYCLOPHOSPHAMIDE
  18. RITUXAN [Suspect]
     Active Substance: RITUXIMAB
     Indication: PRODUCT USED FOR UNKNOWN INDICATION
     Route: 042
     Dates: start: 2002

REACTIONS (14)
  - Wheezing [Unknown]
  - Lymphoedema [Unknown]
  - Dehydration [Unknown]
  - Squamous cell carcinoma [Unknown]
  - Oedema peripheral [Unknown]
  - Asthenia [Unknown]
  - Hyperuricaemia [Unknown]
  - Cough [Unknown]
  - Failure to thrive [Unknown]
  - Hypersensitivity [Unknown]
  - Hypotension [Unknown]
  - Syncope [Unknown]
  - Chills [Unknown]
  - Alopecia [Unknown]
